FAERS Safety Report 14315808 (Version 1)
Quarter: 2017Q4

REPORT INFORMATION
  Report Type: Spontaneous
  Country: ES (occurrence: ES)
  Receive Date: 20171221
  Receipt Date: 20171221
  Transmission Date: 20180321
  Serious: Yes (Other)
  Sender: FDA-Public Use
  Company Number: ES-MYLANLABS-2017M1080015

PATIENT
  Age: 5 Year
  Sex: Male

DRUGS (2)
  1. RASBURICASE [Concomitant]
     Active Substance: RASBURICASE
  2. DEXAMETHASONE. [Suspect]
     Active Substance: DEXAMETHASONE
     Indication: ENDOTRACHEAL INTUBATION
     Route: 065

REACTIONS (1)
  - Ventricular tachycardia [Recovered/Resolved]
